FAERS Safety Report 10154794 (Version 1)
Quarter: 2014Q2

REPORT INFORMATION
  Report Type: Spontaneous
  Country: US (occurrence: None)
  Receive Date: 20140505
  Receipt Date: 20140505
  Transmission Date: 20141212
  Serious: Yes (Hospitalization)
  Sender: FDA-Public Use
  Company Number: None

PATIENT
  Age: 66 Year
  Sex: Female
  Weight: 72.3 kg

DRUGS (2)
  1. CAPECITABINE (XELODA) 42000MG [Suspect]
  2. IRINOTECAN (CPT-11, CAMPTOSAR) [Suspect]

REACTIONS (3)
  - Ureteric obstruction [None]
  - Nephrolithiasis [None]
  - Ureteric stenosis [None]
